FAERS Safety Report 6750596-X (Version None)
Quarter: 2010Q2

REPORT INFORMATION
  Report Type: 
  Country: None (occurrence: None)
  Receive Date: 20100528
  Receipt Date: 20100528
  Transmission Date: 20101027
  Serious: No
  Sender: FDA-Public Use
  Company Number: None

PATIENT
  Sex: Male
  Weight: 32 kg

DRUGS (2)
  1. GAMMAGARD [Suspect]
     Indication: COAGULATION FACTOR DEFICIENCY
     Dosage: 30G ONE TIME IV
     Route: 042
  2. GAMMAGARD [Suspect]
     Indication: FACTOR VIII DEFICIENCY
     Dosage: 30G ONE TIME IV
     Route: 042

REACTIONS (1)
  - URTICARIA [None]
